FAERS Safety Report 8905761 (Version 2)
Quarter: 2013Q1

REPORT INFORMATION
  Report Type: Spontaneous
  Country: US (occurrence: US)
  Receive Date: 20121113
  Receipt Date: 20130108
  Transmission Date: 20140127
  Serious: Yes (Death)
  Sender: FDA-Public Use
  Company Number: US-GLAXOSMITHKLINE-A0999976A

PATIENT
  Age: 77 Year
  Sex: Female

DRUGS (7)
  1. ADVAIR [Suspect]
     Indication: CHRONIC OBSTRUCTIVE PULMONARY DISEASE
     Dosage: 1PUFF TWICE PER DAY
     Route: 055
  2. PREDNISONE [Concomitant]
  3. IPRATROPIUM [Concomitant]
  4. ALBUTEROL [Concomitant]
  5. PULMICORT [Concomitant]
  6. SEIZURE MEDICATION [Concomitant]
  7. ALPRAZOLAM [Concomitant]

REACTIONS (1)
  - Chronic obstructive pulmonary disease [Fatal]
